FAERS Safety Report 8815921 (Version 2)
Quarter: 2012Q4

REPORT INFORMATION
  Report Type: 
  Country: US (occurrence: US)
  Receive Date: 20120928
  Receipt Date: 20121106
  Transmission Date: 20130627
  Serious: Yes (Death)
  Sender: FDA-Public Use
  Company Number: US-ROCHE-1130059

PATIENT
  Age: 50 Year
  Sex: Female

DRUGS (2)
  1. HERCEPTIN [Suspect]
     Indication: BREAST CANCER
     Dosage: Loading dose
     Route: 065
     Dates: start: 19990824
  2. HERCEPTIN [Suspect]
     Route: 065
     Dates: start: 19990909

REACTIONS (1)
  - Breast cancer [Fatal]
